FAERS Safety Report 7210682-7 (Version None)
Quarter: 2011Q1

REPORT INFORMATION
  Report Type: 
  Country: None (occurrence: None)
  Receive Date: 20110105
  Receipt Date: 20101227
  Transmission Date: 20110831
  Serious: No
  Sender: FDA-Public Use
  Company Number: US-PFIZER INC-2010180046

PATIENT
  Sex: Female
  Weight: 47.619 kg

DRUGS (1)
  1. EFFEXOR [Suspect]
     Indication: ARTHRALGIA
     Dosage: 18.75 MG, AS NEEDED
     Dates: start: 20100101

REACTIONS (1)
  - VAGINAL HAEMORRHAGE [None]
